FAERS Safety Report 8799598 (Version 2)
Quarter: 2012Q4

REPORT INFORMATION
  Report Type: 
  Country: US (occurrence: US)
  Receive Date: 20120919
  Receipt Date: 20121213
  Transmission Date: 20130627
  Serious: Yes (Hospitalization, Other)
  Sender: FDA-Public Use
  Company Number: US-PFIZER INC-2012051345

PATIENT
  Age: 61 Year
  Sex: Male

DRUGS (1)
  1. CHANTIX [Suspect]
     Indication: SMOKING CESSATION THERAPY
     Dosage: starting pack and ^monthly maintenance^
     Dates: start: 20090416, end: 2009

REACTIONS (2)
  - Suicide attempt [Recovered/Resolved]
  - Depression [Recovered/Resolved]
